FAERS Safety Report 7059544-9 (Version None)
Quarter: 2010Q4

REPORT INFORMATION
  Report Type: 
  Country: None (occurrence: None)
  Receive Date: 20101025
  Receipt Date: 20101012
  Transmission Date: 20110411
  Serious: Yes (Hospitalization)
  Sender: FDA-Public Use
  Company Number: PHHY2010DE46302

PATIENT
  Sex: Male

DRUGS (3)
  1. ZOMETA [Suspect]
     Indication: METASTASES TO BONE
     Dosage: 4 MG EVERY 4 WEEKS
     Route: 042
     Dates: start: 20040816, end: 20100520
  2. BICALUTAMIDE [Concomitant]
     Indication: PROSTATE CANCER
  3. ELIGARD [Concomitant]

REACTIONS (11)
  - APHAGIA [None]
  - DENTAL CARE [None]
  - LYMPHADENOPATHY [None]
  - OEDEMA MOUTH [None]
  - ORAL DISCHARGE [None]
  - ORAL DISORDER [None]
  - OSTEOMYELITIS [None]
  - OSTEONECROSIS OF JAW [None]
  - PAIN [None]
  - STOMATITIS [None]
  - TOOTH EXTRACTION [None]
